FAERS Safety Report 14345704 (Version 1)
Quarter: 2018Q1

REPORT INFORMATION
  Report Type: Spontaneous
  Country: CA (occurrence: CA)
  Receive Date: 20180103
  Receipt Date: 20180103
  Transmission Date: 20180509
  Serious: Yes (Other)
  Sender: FDA-Public Use
  Company Number: CA-AUROBINDO-AUR-APL-2017-48556

PATIENT
  Age: 93 Year
  Sex: Female

DRUGS (2)
  1. VENLAFAXINE [Suspect]
     Active Substance: VENLAFAXINE HYDROCHLORIDE
     Indication: DEPRESSION
     Dosage: THE CUMULATIVE PERSON-MONTH (P-M) DOSE OF VENLAFAXINE WAS 128
     Dates: start: 201412, end: 201412
  2. VENLAFAXINE [Suspect]
     Active Substance: VENLAFAXINE HYDROCHLORIDE
     Dosage: THE CUMULATIVE PERSON-MONTH (P-M) DOSE OF VENLAFAXINE WAS 128
     Dates: start: 200405, end: 201412

REACTIONS (2)
  - Bronchiectasis [Recovering/Resolving]
  - Interstitial lung disease [Recovering/Resolving]

NARRATIVE: CASE EVENT DATE: 201006
